FAERS Safety Report 6966351-1 (Version None)
Quarter: 2010Q3

REPORT INFORMATION
  Report Type: 
  Country: None (occurrence: None)
  Receive Date: 20100903
  Receipt Date: 20100827
  Transmission Date: 20110219
  Serious: Yes (Other)
  Sender: FDA-Public Use
  Company Number: US-ROCHE-707750

PATIENT
  Sex: Female

DRUGS (4)
  1. BONIVA [Suspect]
     Indication: BONE DISORDER
     Route: 065
     Dates: start: 20040101, end: 20100101
  2. LOVAZA [Suspect]
     Indication: PRODUCT USED FOR UNKNOWN INDICATION
     Route: 065
  3. NIFEDIPINE [Suspect]
     Indication: PRODUCT USED FOR UNKNOWN INDICATION
     Route: 065
  4. ZETIA [Concomitant]

REACTIONS (4)
  - DEVICE MALFUNCTION [None]
  - GINGIVAL DISORDER [None]
  - JAW DISORDER [None]
  - TOOTH DISORDER [None]
